FAERS Safety Report 7532819-2 (Version None)
Quarter: 2011Q2

REPORT INFORMATION
  Report Type: 
  Country: None (occurrence: None)
  Receive Date: 20110601
  Receipt Date: 20110526
  Transmission Date: 20111010
  Serious: Yes (Hospitalization, Other)
  Sender: FDA-Public Use
  Company Number: 2009SP023504

PATIENT
  Age: 26 Year
  Sex: Female
  Weight: 95.2554 kg

DRUGS (1)
  1. NUVARING [Suspect]
     Indication: CONTRACEPTION
     Dosage: 1 DF
     Dates: start: 20030801

REACTIONS (12)
  - HEADACHE [None]
  - PNEUMONIA [None]
  - DEEP VEIN THROMBOSIS [None]
  - HEART RATE IRREGULAR [None]
  - ANGINA PECTORIS [None]
  - PULMONARY EMBOLISM [None]
  - MENINGITIS [None]
  - MUSCULOSKELETAL CHEST PAIN [None]
  - NASOPHARYNGITIS [None]
  - INJURY [None]
  - HYPERTENSION [None]
  - GENERAL PHYSICAL CONDITION ABNORMAL [None]
